FAERS Safety Report 20926394 (Version 4)
Quarter: 2022Q3

REPORT INFORMATION
  Report Type: Report from Study
  Country: US (occurrence: US)
  Receive Date: 20220607
  Receipt Date: 20220808
  Transmission Date: 20221027
  Serious: Yes (Hospitalization, Other)
  Sender: FDA-Public Use
  Company Number: US-TAKEDA-2022TUS037433

PATIENT
  Sex: Male

DRUGS (1)
  1. BRIGATINIB [Suspect]
     Active Substance: BRIGATINIB
     Indication: Lung carcinoma cell type unspecified stage 0
     Dosage: 180 MILLIGRAM, QD
     Route: 048
     Dates: start: 20220608

REACTIONS (4)
  - Seizure [Unknown]
  - Fall [Unknown]
  - Diarrhoea [Unknown]
  - Blood pressure increased [Unknown]
